FAERS Safety Report 4580503-X (Version None)
Quarter: 2005Q1

REPORT INFORMATION
  Report Type: 
  Country: None (occurrence: None)
  Receive Date: 20050127
  Receipt Date: 20040824
  Transmission Date: 20050727
  Serious: No
  Sender: FDA-Public Use
  Company Number: USA040773510

PATIENT
  Sex: Female

DRUGS (7)
  1. STRATTERA [Suspect]
     Dosage: 80 MG DAY
     Dates: start: 20040301
  2. FLUOXETINE HYDROCHLORIDE [Concomitant]
  3. ZYRTEC [Concomitant]
  4. THYROID TAB [Concomitant]
  5. MOBIC [Concomitant]
  6. SKELAXIN [Concomitant]
  7. MUSCLE RELAXANT [Concomitant]

REACTIONS (5)
  - BLOOD PRESSURE INCREASED [None]
  - HYPERHIDROSIS [None]
  - METANEPHRINE URINE INCREASED [None]
  - MIGRAINE [None]
  - NORMETANEPHRINE URINE INCREASED [None]
